FAERS Safety Report 6705086-7 (Version None)
Quarter: 2010Q2

REPORT INFORMATION
  Report Type: 
  Country: None (occurrence: None)
  Receive Date: 20100430
  Receipt Date: 20100112
  Transmission Date: 20101027
  Serious: No
  Sender: FDA-Public Use
  Company Number: US-ASTRAZENECA-2009SE28148

PATIENT
  Age: 28 Year
  Sex: Female
  Weight: 51.3 kg

DRUGS (4)
  1. NEXIUM [Suspect]
     Route: 048
     Dates: start: 20090901
  2. TYLENOL-500 [Concomitant]
  3. AMOXI [Concomitant]
     Indication: HELICOBACTER INFECTION
  4. BIAXIN [Concomitant]
     Indication: HELICOBACTER INFECTION

REACTIONS (12)
  - BACK PAIN [None]
  - CONFUSIONAL STATE [None]
  - CRYING [None]
  - DECREASED ACTIVITY [None]
  - DIZZINESS [None]
  - DRUG DOSE OMISSION [None]
  - FAECES DISCOLOURED [None]
  - FATIGUE [None]
  - HEADACHE [None]
  - HORMONE LEVEL ABNORMAL [None]
  - MEMORY IMPAIRMENT [None]
  - PYREXIA [None]
